FAERS Safety Report 20459083 (Version 2)
Quarter: 2022Q1

REPORT INFORMATION
  Report Type: Spontaneous
  Country: JP (occurrence: JP)
  Receive Date: 20220211
  Receipt Date: 20220224
  Transmission Date: 20220423
  Serious: Yes (Hospitalization)
  Sender: FDA-Public Use
  Company Number: JP-TEVA-2022-JP-2005228

PATIENT
  Age: 81 Year
  Sex: Female

DRUGS (1)
  1. WARFARIN [Suspect]
     Active Substance: WARFARIN
     Indication: Anticoagulant therapy
     Route: 065

REACTIONS (5)
  - Hyperammonaemic encephalopathy [Recovering/Resolving]
  - Gastrointestinal haemorrhage [Unknown]
  - Melaena [Unknown]
  - Coma [Recovering/Resolving]
  - Hepatic encephalopathy [Recovering/Resolving]
